FAERS Safety Report 20380236 (Version 2)
Quarter: 2022Q3

REPORT INFORMATION
  Report Type: Spontaneous
  Country: US (occurrence: US)
  Receive Date: 20220126
  Receipt Date: 20220805
  Transmission Date: 20221026
  Serious: Yes (Other)
  Sender: FDA-Public Use
  Company Number: US-JNJFOC-20220133338

PATIENT
  Age: 6 Decade
  Sex: Female

DRUGS (11)
  1. ELMIRON [Suspect]
     Active Substance: PENTOSAN POLYSULFATE SODIUM
     Indication: Cystitis interstitial
     Dosage: 300 TO 400 MG PER DAY
     Route: 048
     Dates: start: 200612, end: 200707
  2. ELMIRON [Suspect]
     Active Substance: PENTOSAN POLYSULFATE SODIUM
     Dosage: 300 TO 400 MG PER DAY
     Route: 048
     Dates: start: 20070808, end: 201110
  3. ELMIRON [Suspect]
     Active Substance: PENTOSAN POLYSULFATE SODIUM
     Dosage: 300 TO 400 MG PER DAY
     Route: 048
     Dates: start: 20111103, end: 20130907
  4. ELMIRON [Suspect]
     Active Substance: PENTOSAN POLYSULFATE SODIUM
     Dosage: 300 TO 400 MG PER DAY
     Route: 048
     Dates: start: 20131005, end: 20140601
  5. ELMIRON [Suspect]
     Active Substance: PENTOSAN POLYSULFATE SODIUM
     Dosage: 300 TO 400 MG PER DAY
     Route: 048
     Dates: start: 20140801, end: 20191204
  6. ELMIRON [Suspect]
     Active Substance: PENTOSAN POLYSULFATE SODIUM
     Dosage: 300 TO 400 MG PER DAY
     Route: 048
     Dates: start: 20191227, end: 20200622
  7. MAXALT [Concomitant]
     Active Substance: RIZATRIPTAN BENZOATE
     Indication: Migraine
     Dates: start: 200201
  8. ESTRADIOL [Concomitant]
     Active Substance: ESTRADIOL
     Indication: Menopause
     Dates: start: 200701
  9. TOPAMAX [Concomitant]
     Active Substance: TOPIRAMATE
     Indication: Migraine
     Dates: start: 200803
  10. PANTOPRAZOLE [Concomitant]
     Active Substance: PANTOPRAZOLE
     Indication: Gastrooesophageal reflux disease
     Dates: start: 201503
  11. RANITIDINE [Concomitant]
     Active Substance: RANITIDINE
     Indication: Ulcer
     Dates: start: 200906, end: 202009

REACTIONS (3)
  - Vitreous detachment [Unknown]
  - Maculopathy [Unknown]
  - Off label use [Unknown]

NARRATIVE: CASE EVENT DATE: 20061231
